FAERS Safety Report 19025201 (Version 1)
Quarter: 2021Q1

REPORT INFORMATION
  Report Type: Spontaneous
  Country: FR (occurrence: FR)
  Receive Date: 20210318
  Receipt Date: 20210318
  Transmission Date: 20210420
  Serious: Yes (Other)
  Sender: FDA-Public Use
  Company Number: FR-TEVA-2021-FR-1890989

PATIENT
  Age: 49 Year
  Sex: Female

DRUGS (1)
  1. CIPROFLOXACINE [Suspect]
     Active Substance: CIPROFLOXACIN
     Indication: PSEUDOMONAS INFECTION
     Dosage: 2250MG
     Route: 048
     Dates: start: 20201014, end: 20210114

REACTIONS (1)
  - Tenosynovitis [Not Recovered/Not Resolved]

NARRATIVE: CASE EVENT DATE: 20210113
